FAERS Safety Report 14790606 (Version 2)
Quarter: 2019Q1

REPORT INFORMATION
  Report Type: Spontaneous
  Country: US (occurrence: US)
  Receive Date: 20180423
  Receipt Date: 20190220
  Transmission Date: 20190417
  Serious: Yes (Hospitalization, Other)
  Sender: FDA-Public Use
  Company Number: US-SA-2018SA111164

PATIENT
  Age: 35 Year
  Sex: Female

DRUGS (1)
  1. SEVELAMER SALT NOT SPECIFIED [Suspect]
     Active Substance: SEVELAMER
     Dosage: UNK UNK,1600 MD;TID
     Route: 065

REACTIONS (4)
  - Colitis ischaemic [Unknown]
  - Haematochezia [Unknown]
  - Abdominal pain lower [Unknown]
  - Crystal deposit intestine [Unknown]
